FAERS Safety Report 11076661 (Version 2)
Quarter: 2015Q3

REPORT INFORMATION
  Report Type: Spontaneous
  Country: US (occurrence: US)
  Receive Date: 20150429
  Receipt Date: 20150806
  Transmission Date: 20151125
  Serious: Yes (Other)
  Sender: FDA-Public Use
  Company Number: US-ACTAVIS-2015-08794

PATIENT
  Age: 49 Year
  Sex: Female

DRUGS (8)
  1. DULOXETINE HYDROCHLORIDE (AELLC) [Suspect]
     Active Substance: DULOXETINE HYDROCHLORIDE
     Indication: PRODUCT USED FOR UNKNOWN INDICATION
     Dosage: 60 MG, DAILY
     Route: 065
     Dates: start: 201312, end: 201405
  2. LYRICA [Suspect]
     Active Substance: PREGABALIN
     Indication: MYOFASCIAL PAIN SYNDROME
  3. OPANA [Concomitant]
     Active Substance: OXYMORPHONE HYDROCHLORIDE
     Dosage: 7.5 MG, TWICE DAILY
     Route: 065
     Dates: start: 20150224
  4. CYMBALTA [Suspect]
     Active Substance: DULOXETINE HYDROCHLORIDE
     Indication: ANXIETY
  5. LYRICA [Suspect]
     Active Substance: PREGABALIN
     Indication: FIBROMYALGIA
     Dosage: 75 MG, THREE TIMES DAILY
     Route: 065
     Dates: start: 20140206, end: 20141018
  6. CELEBREX [Concomitant]
     Active Substance: CELECOXIB
     Dosage: UNK
     Route: 065
     Dates: start: 201402
  7. PREMPRO [Concomitant]
     Active Substance: ESTROGENS, CONJUGATED\MEDROXYPROGESTERONE ACETATE
     Dosage: UNK
     Route: 065
     Dates: start: 201311
  8. CYMBALTA [Suspect]
     Active Substance: DULOXETINE HYDROCHLORIDE
     Indication: STRESS
     Dosage: 60 MG, DAILY
     Route: 065
     Dates: start: 201405

REACTIONS (12)
  - Memory impairment [Not Recovered/Not Resolved]
  - Suicidal ideation [Not Recovered/Not Resolved]
  - Back pain [Not Recovered/Not Resolved]
  - Pain [Recovered/Resolved]
  - Pain in extremity [Unknown]
  - Apathy [Not Recovered/Not Resolved]
  - Depression [Not Recovered/Not Resolved]
  - Unevaluable event [Not Recovered/Not Resolved]
  - Thought blocking [Not Recovered/Not Resolved]
  - Motor dysfunction [Not Recovered/Not Resolved]
  - Cognitive disorder [Not Recovered/Not Resolved]
  - Depressed mood [Not Recovered/Not Resolved]

NARRATIVE: CASE EVENT DATE: 201403
